FAERS Safety Report 9683945 (Version 1)
Quarter: 2013Q4

REPORT INFORMATION
  Report Type: Spontaneous
  Country: US (occurrence: US)
  Receive Date: 20131112
  Receipt Date: 20131112
  Transmission Date: 20140711
  Serious: Yes (Other)
  Sender: FDA-Public Use
  Company Number: US-MALLINCKRODT-T201304674

PATIENT
  Sex: Male
  Weight: 99.77 kg

DRUGS (2)
  1. FENTANYL TRANSDERMAL SYSTEM [Suspect]
     Indication: BACK PAIN
     Dosage: 50 MCG/HR, Q 72 HRS
     Route: 062
     Dates: start: 20131007
  2. MORPHINE [Concomitant]
     Indication: BREAKTHROUGH PAIN
     Dosage: 60 MG, PRN
     Route: 048

REACTIONS (3)
  - Intentional drug misuse [Recovered/Resolved]
  - Wrong technique in drug usage process [Recovered/Resolved]
  - Drug ineffective [Not Recovered/Not Resolved]
